FAERS Safety Report 9511441 (Version 1)
Quarter: 2013Q3

REPORT INFORMATION
  Report Type: Spontaneous
  Country: US (occurrence: US)
  Receive Date: 20130910
  Receipt Date: 20130910
  Transmission Date: 20140515
  Serious: Yes (Life-Threatening, Hospitalization)
  Sender: FDA-Public Use
  Company Number: US-BRISTOL-MYERS SQUIBB COMPANY-19362458

PATIENT
  Age: 68 Year
  Sex: Male

DRUGS (2)
  1. SPRYCEL (CML) TABS 100 MG [Suspect]
     Indication: CHRONIC MYELOID LEUKAEMIA
     Route: 048
     Dates: start: 201209
  2. LISINOPRIL [Concomitant]

REACTIONS (2)
  - Myocardial infarction [Unknown]
  - Convulsion [Unknown]
